FAERS Safety Report 23727369 (Version 2)
Quarter: 2024Q2

REPORT INFORMATION
  Report Type: Spontaneous
  Country: JP (occurrence: JP)
  Receive Date: 20240410
  Receipt Date: 20240501
  Transmission Date: 20240716
  Serious: Yes (Other)
  Sender: FDA-Public Use
  Company Number: JP-ELI_LILLY_AND_COMPANY-JP202404004241

PATIENT
  Age: 15 Year
  Sex: Male
  Weight: 52 kg

DRUGS (4)
  1. OMVOH [Suspect]
     Active Substance: MIRIKIZUMAB-MRKZ
     Indication: Colitis ulcerative
     Dosage: 300 MG, SINGLE
     Route: 041
     Dates: start: 20240405, end: 20240405
  2. LIALDA [Concomitant]
     Active Substance: MESALAMINE
     Indication: Colitis ulcerative
     Dosage: 4800 MG, DAILY
     Route: 048
     Dates: start: 20230929
  3. BIO-THREE [Concomitant]
     Active Substance: HERBALS
     Indication: Colitis ulcerative
     Dosage: 2 DOSAGE FORM, BID
     Route: 048
     Dates: start: 20231218
  4. RAMOSETRON HYDROCHLORIDE [Concomitant]
     Active Substance: RAMOSETRON HYDROCHLORIDE
     Indication: Irritable bowel syndrome
     Dosage: 1 DOSAGE FORM, DAILY
     Route: 048
     Dates: start: 20240105

REACTIONS (1)
  - Infusion related reaction [Recovered/Resolved]

NARRATIVE: CASE EVENT DATE: 20240405
